FAERS Safety Report 14203547 (Version 1)
Quarter: 2017Q4

REPORT INFORMATION
  Report Type: Spontaneous
  Country: US (occurrence: None)
  Receive Date: 20171117
  Receipt Date: 20171117
  Transmission Date: 20180321
  Serious: No
  Sender: FDA-Public Use
  Company Number: None

PATIENT
  Age: 90 Year
  Sex: Female

DRUGS (1)
  1. CAPECITABINE 500MG TEVA [Suspect]
     Active Substance: CAPECITABINE
     Dosage: 14DAYS ON THEN 7 DAYS OFF THEN
     Dates: start: 20170812

REACTIONS (1)
  - Eye irritation [None]

NARRATIVE: CASE EVENT DATE: 20170922
